FAERS Safety Report 9394916 (Version 2)
Quarter: 2013Q3

REPORT INFORMATION
  Report Type: Spontaneous
  Country: DE (occurrence: DE)
  Receive Date: 20130711
  Receipt Date: 20130726
  Transmission Date: 20140515
  Serious: Yes (Other)
  Sender: FDA-Public Use
  Company Number: DE-PFIZER INC-2013201127

PATIENT
  Age: 60 Year
  Sex: Female

DRUGS (7)
  1. TAFIL [Suspect]
     Dosage: 0.5 MG, 1-2/ MONTH
     Dates: end: 201303
  2. TAFIL [Suspect]
     Dosage: 0.5 MG, 2-3 /WEEK
     Dates: start: 201303, end: 201307
  3. DILZEM [Concomitant]
     Indication: BLOOD PRESSURE INCREASED
     Dosage: UNK
  4. CLONIDINE [Concomitant]
     Indication: BLOOD PRESSURE INCREASED
     Dosage: UNK
  5. RAMIPRIL [Concomitant]
     Indication: BLOOD PRESSURE INCREASED
     Dosage: UNK
  6. NITRO-SPRAY [Concomitant]
     Indication: BLOOD PRESSURE INCREASED
     Dosage: UNK
  7. BALDRIAN DRAGEES [Concomitant]
     Dosage: UNK

REACTIONS (6)
  - Drug dependence [Unknown]
  - Glaucoma [Unknown]
  - Blood pressure increased [Unknown]
  - Constipation [Unknown]
  - Insomnia [Recovered/Resolved]
  - Nervousness [Unknown]
